FAERS Safety Report 8200008-4 (Version None)
Quarter: 2012Q1

REPORT INFORMATION
  Report Type: 
  Country: None (occurrence: None)
  Receive Date: 20120312
  Receipt Date: 20120302
  Transmission Date: 20120608
  Serious: No
  Sender: FDA-Public Use
  Company Number: US-PFIZER INC-2012029536

PATIENT
  Sex: Male

DRUGS (3)
  1. PRISTIQ [Suspect]
     Dosage: 25 MG, UNK
  2. PRISTIQ [Suspect]
     Indication: DEPRESSION
     Dosage: 50 MG, 1X/DAY
     Route: 048
     Dates: start: 20120125
  3. ELAVIL [Concomitant]
     Dosage: UNK

REACTIONS (16)
  - ASTHENIA [None]
  - DISTURBANCE IN ATTENTION [None]
  - FATIGUE [None]
  - MEMORY IMPAIRMENT [None]
  - INSOMNIA [None]
  - ARTHRALGIA [None]
  - DEPRESSION [None]
  - WEIGHT INCREASED [None]
  - ABDOMINAL DISTENSION [None]
  - DIZZINESS [None]
  - DECREASED APPETITE [None]
  - METABOLIC DISORDER [None]
  - AMNESIA [None]
  - ANXIETY [None]
  - CONSTIPATION [None]
  - RASH [None]
